FAERS Safety Report 18181579 (Version 1)
Quarter: 2020Q3

REPORT INFORMATION
  Report Type: Spontaneous
  Country: ES (occurrence: ES)
  Receive Date: 20200821
  Receipt Date: 20200821
  Transmission Date: 20201103
  Serious: Yes (Hospitalization)
  Sender: FDA-Public Use
  Company Number: ES-CADILA HEALTHCARE LIMITED-ES-ZYDUS-028335

PATIENT

DRUGS (7)
  1. DEXKETOPROFEN [Suspect]
     Active Substance: DEXKETOPROFEN
     Dosage: 5MG/8H
     Route: 048
     Dates: start: 20170625, end: 20170705
  2. SALBUTAMOL [Concomitant]
     Active Substance: ALBUTEROL
     Dosage: 2INH/8H
     Route: 055
     Dates: start: 20170625
  3. CHLORTALIDONE [Concomitant]
     Active Substance: CHLORTHALIDONE
     Indication: PRODUCT USED FOR UNKNOWN INDICATION
     Dosage: 25 MG DAY
     Route: 048
     Dates: start: 20170625
  4. AMLODIPINO ALTER [Concomitant]
     Active Substance: AMLODIPINE BESYLATE
     Dosage: 10 MILLIGRAM,10 MG COMPRIMIDES EFG, 30 TABLETS AND 1?0?0,(INTERVAL :24 HOURS)
     Route: 048
     Dates: start: 20170625
  5. LEVOFLOXACIN. [Suspect]
     Active Substance: LEVOFLOXACIN
     Indication: PNEUMONIA
     Dosage: 500 MILLIGRAM,500MG DAY,(INTERVAL :24 HOURS)
     Route: 042
     Dates: start: 20170625, end: 20170705
  6. PARACETAMOL [Concomitant]
     Active Substance: ACETAMINOPHEN
     Dosage: 1 GRAM,1 GR/8H,(INTERVAL :8 HOURS)
     Route: 042
     Dates: start: 20170625
  7. ENOXAPARIN [Concomitant]
     Active Substance: ENOXAPARIN
     Dosage: 40 MILLIGRAM,40 MG DIA,(INTERVAL :24 DAYS)
     Route: 058
     Dates: start: 20170630

REACTIONS (2)
  - Eosinophilia [Recovered/Resolved]
  - Acute kidney injury [Recovered/Resolved]

NARRATIVE: CASE EVENT DATE: 20170703
